FAERS Safety Report 6846880-1 (Version None)
Quarter: 2010Q3

REPORT INFORMATION
  Report Type: 
  Country: None (occurrence: None)
  Receive Date: 20100715
  Receipt Date: 20071027
  Transmission Date: 20110219
  Serious: No
  Sender: FDA-Public Use
  Company Number: US-PFIZER INC-2007080483

PATIENT
  Sex: Female
  Weight: 75 kg

DRUGS (2)
  1. CHANTIX [Suspect]
     Indication: SMOKING CESSATION THERAPY
     Dates: start: 20070913
  2. LEVOTHROID [Concomitant]
     Indication: HYPOTHYROIDISM

REACTIONS (4)
  - CONSTIPATION [None]
  - FLATULENCE [None]
  - HANGOVER [None]
  - INSOMNIA [None]
